FAERS Safety Report 15129685 (Version 5)
Quarter: 2024Q1

REPORT INFORMATION
  Report Type: Spontaneous
  Country: US (occurrence: US)
  Receive Date: 20180711
  Receipt Date: 20240226
  Transmission Date: 20240410
  Serious: No
  Sender: FDA-Public Use
  Company Number: US-SA-2018SA181933

PATIENT
  Sex: Female

DRUGS (3)
  1. DUPIXENT [Suspect]
     Active Substance: DUPILUMAB
     Indication: Dermatitis atopic
     Dosage: 300 MG, QW
     Route: 058
     Dates: start: 20170605
  2. DUPIXENT [Suspect]
     Active Substance: DUPILUMAB
     Indication: Idiopathic urticaria
     Dosage: 300 MG, QW
     Route: 058
     Dates: start: 201803
  3. DUPIXENT [Suspect]
     Active Substance: DUPILUMAB
     Indication: Idiopathic urticaria
     Dosage: 300 MG, QOW
     Route: 058
     Dates: start: 202007

REACTIONS (8)
  - Depression [Unknown]
  - Alopecia [Unknown]
  - Eye irritation [Unknown]
  - Dermatitis atopic [Unknown]
  - Drug ineffective [Unknown]
  - Dry eye [Unknown]
  - Product use in unapproved indication [Unknown]
  - Affective disorder [Unknown]

NARRATIVE: CASE EVENT DATE: 20180101
